FAERS Safety Report 4696169-4 (Version None)
Quarter: 2005Q2

REPORT INFORMATION
  Report Type: 
  Country: None (occurrence: None)
  Receive Date: 20050620
  Receipt Date: 20050608
  Transmission Date: 20051028
  Serious: Yes (Death, Hospitalization)
  Sender: FDA-Public Use
  Company Number: 2004055469

PATIENT
  Age: 60 Year
  Sex: Female

DRUGS (7)
  1. NEURONTIN [Suspect]
     Indication: ILL-DEFINED DISORDER
     Dosage: (2 IN 1 D), ORAL
     Route: 048
     Dates: start: 20040521, end: 20040630
  2. METFORMIN (METFORMIN HYDROCHLORIDE) (METFORMIN) [Suspect]
     Indication: ILL-DEFINED DISORDER
     Dosage: 3 GRAM ( 1 IN 1 D), ORAL
     Route: 048
     Dates: end: 20040630
  3. RIFAMPICIN [Suspect]
     Indication: ILL-DEFINED DISORDER
     Dosage: (6 IN 1 D), ORAL
     Route: 048
     Dates: start: 20040521, end: 20040630
  4. MACRODANTIN [Suspect]
     Indication: ILL-DEFINED DISORDER
     Dosage: (1 D), ORAL
     Route: 048
     Dates: start: 20040622, end: 20040630
  5. OFLOXACIN [Suspect]
     Indication: ILL-DEFINED DISORDER
     Dosage: 400 MG (400 MEQ, 1 IN 1 D), ORAL
     Route: 048
     Dates: start: 20040601, end: 20040630
  6. APROVEL (IRBESARTAN) [Concomitant]
  7. FERROGRAD C  (FERROUS SULFATE EXSICCATED, SODIUM ASCORBATE) [Concomitant]

REACTIONS (8)
  - CARDIAC ARREST [None]
  - EPILEPSY [None]
  - HEPATIC FAILURE [None]
  - KETOACIDOSIS [None]
  - LACTIC ACIDOSIS [None]
  - PROTHROMBIN TIME PROLONGED [None]
  - RESPIRATORY DISTRESS [None]
  - SEPTIC SHOCK [None]
